FAERS Safety Report 8172705-0 (Version None)
Quarter: 2012Q1

REPORT INFORMATION
  Report Type: 
  Country: None (occurrence: None)
  Receive Date: 20120223
  Receipt Date: 20120213
  Transmission Date: 20120608
  Serious: Yes (Death)
  Sender: FDA-Public Use
  Company Number: DSA_55151_2012

PATIENT

DRUGS (4)
  1. IRINOTECAN HYDROCHLORIDE [Suspect]
     Indication: COLORECTAL CANCER METASTATIC
     Dosage: (180 MG/M2, EVERY OTHER WEEK INTRAVENOUS (NOT OTHERWISE SPECIFIED))
     Route: 042
  2. BEVACIZUMAB (BEVACIZUMAB) 5 MG/KG [Suspect]
     Indication: COLORECTAL CANCER METASTATIC
     Dosage: (5 MG/KG, EVERY OTHER WEEK
  3. FLUOROURACIL [Suspect]
     Indication: COLORECTAL CANCER METASTATIC
     Dosage: SEE IMAGE
     Route: 042
  4. CALCIUM FOLINATE (CALCIUM FOLINATE) 200 MG/M2 [Suspect]
     Indication: COLORECTAL CANCER METASTATIC
     Dosage: (200 MG/M2 EVERY OTHER WEEK INTRAVENOUS (NOT OTHERWISE SPECIFIED((
     Route: 042

REACTIONS (1)
  - LARGE INTESTINE PERFORATION [None]
